FAERS Safety Report 8249459-2 (Version None)
Quarter: 2012Q2

REPORT INFORMATION
  Report Type: 
  Country: None (occurrence: None)
  Receive Date: 20120402
  Receipt Date: 20120322
  Transmission Date: 20120825
  Serious: Yes (Hospitalization)
  Sender: FDA-Public Use
  Company Number: US-JNJFOC-20120206324

PATIENT
  Sex: Female
  Weight: 40 kg

DRUGS (7)
  1. REMICADE [Suspect]
     Indication: INFLAMMATORY BOWEL DISEASE
     Route: 042
     Dates: start: 20091001, end: 20110227
  2. STRATTERA [Concomitant]
  3. ZOLOFT [Concomitant]
  4. NEXIUM [Concomitant]
  5. HUMIRA [Concomitant]
     Dates: start: 20111215
  6. PREDNISONE TAB [Concomitant]
  7. TYLENOL [Concomitant]

REACTIONS (1)
  - CROHN'S DISEASE [None]
